FAERS Safety Report 24139335 (Version 3)
Quarter: 2024Q4

REPORT INFORMATION
  Report Type: Report from Study
  Country: ES (occurrence: ES)
  Receive Date: 20240726
  Receipt Date: 20241105
  Transmission Date: 20250115
  Serious: Yes (Hospitalization)
  Sender: ROCHE
  Company Number: ES-ROCHE-10000033807

PATIENT
  Age: 76 Year
  Sex: Female
  Weight: 64.5 kg

DRUGS (8)
  1. BEVACIZUMAB [Suspect]
     Active Substance: BEVACIZUMAB
     Indication: Non-small cell lung cancer recurrent
     Route: 042
     Dates: start: 20220329, end: 20221102
  2. BEVACIZUMAB [Suspect]
     Active Substance: BEVACIZUMAB
     Indication: Ovarian epithelial cancer recurrent
  3. IRINOTECAN [Suspect]
     Active Substance: IRINOTECAN
     Indication: Ovarian epithelial cancer recurrent
     Route: 042
     Dates: start: 20220329, end: 20221102
  4. IRINOTECAN [Suspect]
     Active Substance: IRINOTECAN
     Indication: Non-small cell lung cancer recurrent
  5. FLUOROURACIL [Suspect]
     Active Substance: FLUOROURACIL
     Indication: Non-small cell lung cancer recurrent
     Route: 042
     Dates: start: 20220329, end: 20221102
  6. FLUOROURACIL [Suspect]
     Active Substance: FLUOROURACIL
     Indication: Ovarian epithelial cancer recurrent
  7. LEUCOVORIN CALCIUM [Suspect]
     Active Substance: LEUCOVORIN CALCIUM
     Indication: Ovarian epithelial cancer recurrent
     Route: 042
     Dates: start: 20220329, end: 20221102
  8. LEUCOVORIN CALCIUM [Suspect]
     Active Substance: LEUCOVORIN CALCIUM
     Indication: Non-small cell lung cancer recurrent

REACTIONS (1)
  - Diarrhoea [Recovered/Resolved]

NARRATIVE: CASE EVENT DATE: 20220610
